FAERS Safety Report 8766447 (Version 1)
Quarter: 2012Q4

REPORT INFORMATION
  Report Type: 
  Country: None (occurrence: None)
  Receive Date: 20120904
  Receipt Date: 20120904
  Transmission Date: 20130627
  Serious: Yes (Other)
  Sender: FDA-Public Use
  Company Number: RS-ROCHE-1113388

PATIENT

DRUGS (3)
  1. CAPECITABINE [Suspect]
     Indication: BREAST CANCER METASTATIC
     Route: 065
  2. NOLVADEX [Concomitant]
  3. FEMARA [Concomitant]

REACTIONS (1)
  - Disease progression [Unknown]
